FAERS Safety Report 6147202-4 (Version None)
Quarter: 2009Q2

REPORT INFORMATION
  Report Type: 
  Country: None (occurrence: None)
  Receive Date: 20090407
  Receipt Date: 20090216
  Transmission Date: 20091009
  Serious: No
  Sender: FDA-Public Use
  Company Number: US-TYCO HEALTHCARE/MALLINCKRODT-T200900427

PATIENT
  Age: 50 Year
  Sex: Female

DRUGS (1)
  1. METHADOSE [Suspect]
     Dosage: UNK
     Dates: start: 20050101, end: 20060101

REACTIONS (1)
  - MEMORY IMPAIRMENT [None]
